FAERS Safety Report 5782254-2 (Version None)
Quarter: 2008Q2

REPORT INFORMATION
  Report Type: 
  Country: None (occurrence: None)
  Receive Date: 20080623
  Receipt Date: 20080616
  Transmission Date: 20081010
  Serious: Yes (Hospitalization, Other)
  Sender: FDA-Public Use
  Company Number: DE-ABBOTT-08P-062-0455171-00

PATIENT
  Sex: Male
  Weight: 74 kg

DRUGS (3)
  1. HUMIRA [Suspect]
     Indication: ANKYLOSING SPONDYLITIS
     Route: 058
     Dates: start: 20060701, end: 20080201
  2. HUMIRA [Suspect]
     Dosage: RESTARTED
  3. TRAMADOL HCL [Concomitant]
     Indication: PAIN

REACTIONS (1)
  - VOCAL CORD POLYP [None]
